FAERS Safety Report 15781143 (Version 1)
Quarter: 2019Q1

REPORT INFORMATION
  Report Type: Report from Study
  Country: FR (occurrence: FR)
  Receive Date: 20190102
  Receipt Date: 20190102
  Transmission Date: 20190417
  Serious: Yes (Hospitalization)
  Sender: FDA-Public Use
  Company Number: FR-SA-2018SA311806

PATIENT
  Weight: 56 kg

DRUGS (2)
  1. CABAZITAXEL [Suspect]
     Active Substance: CABAZITAXEL
     Dosage: 28 MG, QCY
     Route: 042
     Dates: start: 20181010, end: 20181010
  2. CABAZITAXEL [Suspect]
     Active Substance: CABAZITAXEL
     Dosage: 28 MG, QCY
     Route: 042
     Dates: start: 20180830, end: 20180830

REACTIONS (2)
  - Urinary tract infection [Recovered/Resolved]
  - Blood pressure systolic increased [Recovered/Resolved]

NARRATIVE: CASE EVENT DATE: 20181012
